FAERS Safety Report 6635357-4 (Version None)
Quarter: 2010Q1

REPORT INFORMATION
  Report Type: 
  Country: None (occurrence: None)
  Receive Date: 20100311
  Receipt Date: 20100311
  Transmission Date: 20100710
  Serious: Yes (Hospitalization)
  Sender: FDA-Public Use
  Company Number: None

PATIENT
  Age: 41 Year
  Sex: Male
  Weight: 110.6777 kg

DRUGS (1)
  1. AUGMENTIN [Suspect]
     Indication: SINUSITIS
     Dosage: AUGMENTIN PO. LESS THAN 7 DAYS
     Route: 048

REACTIONS (2)
  - CHOLESTASIS [None]
  - IDIOSYNCRATIC DRUG REACTION [None]
